FAERS Safety Report 4788622-X (Version None)
Quarter: 2005Q4

REPORT INFORMATION
  Report Type: 
  Country: None (occurrence: None)
  Receive Date: 20051005
  Receipt Date: 20051003
  Transmission Date: 20060501
  Serious: Yes (Other)
  Sender: FDA-Public Use
  Company Number: US-GLAXOSMITHKLINE-A0576686A

PATIENT
  Age: 42 Year
  Sex: Female

DRUGS (4)
  1. WELLBUTRIN [Suspect]
     Indication: DEPRESSION
     Route: 048
  2. POTASSIUM [Concomitant]
  3. FLEXERIL [Concomitant]
  4. AMBIEN [Concomitant]

REACTIONS (2)
  - DYSURIA [None]
  - RENAL FAILURE ACUTE [None]
